FAERS Safety Report 5480870-9 (Version None)
Quarter: 2007Q4

REPORT INFORMATION
  Report Type: 
  Country: None (occurrence: None)
  Receive Date: 20071004
  Receipt Date: 20070924
  Transmission Date: 20080405
  Serious: Yes (Death, Hospitalization)
  Sender: FDA-Public Use
  Company Number: MEDI-0005380

PATIENT
  Age: 2 Month
  Sex: Female
  Weight: 3.228 kg

DRUGS (5)
  1. SYNAGIS [Suspect]
     Indication: PREMATURE BABY
     Dosage: 48 MG, INTRAMUSCULAR
     Route: 030
     Dates: start: 20070130, end: 20070130
  2. PHENOBARBITAL TAB [Concomitant]
  3. THEOPHYLLINE [Concomitant]
  4. CALCIUM GLYCEROPHOSPHATE           (CALCIUM GLYCEROPHOSPHATE) [Concomitant]
  5. FLUORVIGANTOLETTEN (CHOLESTEROL, COLECALCIFEROL, SODIUM FLUORIDE) [Concomitant]

REACTIONS (3)
  - CARDIOVASCULAR INSUFFICIENCY [None]
  - GASTROENTERITIS ROTAVIRUS [None]
  - SEPSIS [None]
